FAERS Safety Report 14840169 (Version 1)
Quarter: 2018Q2

REPORT INFORMATION
  Report Type: Spontaneous
  Country: JP (occurrence: JP)
  Receive Date: 20180503
  Receipt Date: 20180503
  Transmission Date: 20180711
  Serious: Yes (Life-Threatening, Hospitalization)
  Sender: FDA-Public Use
  Company Number: JP-TEVA-2018-JP-887436

PATIENT
  Age: 66 Year
  Sex: Male

DRUGS (1)
  1. CISPLATIN. [Suspect]
     Active Substance: CISPLATIN
     Indication: HYPOPHARYNGEAL CANCER
     Route: 065

REACTIONS (3)
  - Oedema mucosal [Recovered/Resolved]
  - Computerised tomogram abnormal [Recovered/Resolved]
  - Oedema [Recovered/Resolved]
